FAERS Safety Report 13493052 (Version 1)
Quarter: 2017Q2

REPORT INFORMATION
  Report Type: Spontaneous
  Country: US (occurrence: US)
  Receive Date: 20170427
  Receipt Date: 20170427
  Transmission Date: 20170830
  Serious: No
  Sender: FDA-Public Use
  Company Number: US-ROCHE-1284991

PATIENT
  Sex: Male

DRUGS (9)
  1. AZOPT [Concomitant]
     Active Substance: BRINZOLAMIDE
  2. ASA [Concomitant]
     Active Substance: ASPIRIN
  3. TOPROL XL [Concomitant]
     Active Substance: METOPROLOL SUCCINATE
  4. PEPCID [Concomitant]
     Active Substance: FAMOTIDINE
  5. ZOCOR [Concomitant]
     Active Substance: SIMVASTATIN
  6. XANAX [Concomitant]
     Active Substance: ALPRAZOLAM
  7. ERIVEDGE [Suspect]
     Active Substance: VISMODEGIB
     Indication: BASAL CELL CARCINOMA
     Dosage: 1 DAYS
     Route: 048
     Dates: start: 20130603, end: 20131003
  8. PROTONIX (OMEPRAZOLE) [Concomitant]
  9. LISINOPRIL. [Concomitant]
     Active Substance: LISINOPRIL

REACTIONS (2)
  - Pain in extremity [Not Recovered/Not Resolved]
  - Muscle spasms [Not Recovered/Not Resolved]
